FAERS Safety Report 19808355 (Version 1)
Quarter: 2021Q3

REPORT INFORMATION
  Report Type: Spontaneous
  Country: US (occurrence: US)
  Receive Date: 20210909
  Receipt Date: 20210909
  Transmission Date: 20211014
  Serious: Yes (Other)
  Sender: FDA-Public Use
  Company Number: US-APOTEX-2021AP042422

PATIENT
  Age: 4 Year
  Sex: Male

DRUGS (3)
  1. PHOSPHORUS [Concomitant]
     Active Substance: PHOSPHORUS
     Indication: SUPPLEMENTATION THERAPY
     Dosage: UP TO 55 MG/KG, QD
     Route: 048
  2. CALCITRIOL. [Concomitant]
     Active Substance: CALCITRIOL
     Indication: SUPPLEMENTATION THERAPY
     Dosage: 80 NG/KG, QD
     Route: 048
  3. ZOLEDRONIC ACID INJECTION [Suspect]
     Active Substance: ZOLEDRONIC ACID
     Indication: PRODUCT USED FOR UNKNOWN INDICATION
     Dosage: UNK
     Route: 065

REACTIONS (1)
  - Fanconi syndrome [Recovering/Resolving]
